FAERS Safety Report 10393140 (Version 3)
Quarter: 2015Q3

REPORT INFORMATION
  Report Type: Report from Study
  Country: JP (occurrence: None)
  Receive Date: 20140815
  Receipt Date: 20150831
  Transmission Date: 20151125
  Serious: Yes (Hospitalization, Disabling, Other)
  Sender: FDA-Public Use
  Company Number: 2008JP002017

PATIENT
  Age: 43 Year
  Sex: Female
  Weight: 60 kg

DRUGS (18)
  1. NESINA [Concomitant]
     Active Substance: ALOGLIPTIN BENZOATE
     Indication: HYPERGLYCAEMIA
     Dates: start: 20120818, end: 20130614
  2. AMLODIPINE (AMLODIPINE BESILATE) [Concomitant]
  3. EQUA (VIOLDAGLIPTIN) [Concomitant]
  4. NESINA [Concomitant]
     Active Substance: ALOGLIPTIN BENZOATE
  5. LIPITOR [Concomitant]
     Active Substance: ATORVASTATIN CALCIUM
  6. PROGRAF [Suspect]
     Active Substance: TACROLIMUS\TACROLIMUS ANHYDROUS
     Indication: LUPUS NEPHRITIS
     Route: 048
     Dates: start: 20070622, end: 20130615
  7. ZETIA [Concomitant]
     Active Substance: EZETIMIBE
  8. ROCEPHIN CEFTRIAXONE SODIUM) [Concomitant]
  9. TRAZENTA (LINAGLIPTIN) [Concomitant]
  10. AMLODIPINE (AMLODIPINE BESILATE) [Concomitant]
  11. FAMOTIDINE (FAMOTIDINE) [Concomitant]
     Active Substance: FAMOTIDINE
  12. BAKTAR (SULFAMETHOXAZOLE_TRIMETHOPRIM) [Concomitant]
  13. OLMESARTAN MEDOXOMIL (OLMESARTAN MEDOXOMIL) [Concomitant]
  14. BREDININ [Suspect]
     Active Substance: MIZORIBINE
     Indication: LUPUS NEPHRITIS
     Route: 048
     Dates: start: 20121201
  15. GLACTIV (SITAGLIPTIN PHOSPHATE HYDRATE) [Concomitant]
  16. PREDONINE [Suspect]
     Active Substance: PREDNISOLONE\PREDNISOLONE ACETATE\PREDNISOLONE SODIUM SUCCINATE
     Indication: LUPUS NEPHRITIS
     Route: 048
     Dates: end: 20090303
  17. DIPYRIDAMOLE (DIPYRIDAMOLE) [Concomitant]
  18. BACTRIM (SULFAMETHOXAZOLE TRIMETHOPRIM [Concomitant]

REACTIONS (12)
  - Systemic lupus erythematosus [None]
  - Incorrect dose administered [None]
  - Dyslipidaemia [None]
  - Treatment noncompliance [None]
  - Renal impairment [None]
  - Hyperglycaemia [None]
  - Condition aggravated [None]
  - Infection reactivation [None]
  - Cellulitis [None]
  - Double stranded DNA antibody positive [None]
  - Hypertension [None]
  - Disease recurrence [None]
